FAERS Safety Report 4781681-X (Version None)
Quarter: 2005Q3

REPORT INFORMATION
  Report Type: 
  Country: None (occurrence: None)
  Receive Date: 20050927
  Receipt Date: 20050912
  Transmission Date: 20060218
  Serious: Yes (Other)
  Sender: FDA-Public Use
  Company Number: DE_050916926

PATIENT
  Age: 63 Year
  Sex: Male

DRUGS (2)
  1. XIGRIS [Suspect]
     Indication: MULTI-ORGAN FAILURE
     Dosage: 20 MG/8 HOUR
     Dates: start: 20050704
  2. XIGRIS [Suspect]
     Indication: SEPSIS
     Dosage: 20 MG/8 HOUR
     Dates: start: 20050704

REACTIONS (3)
  - DRUG RESISTANCE [None]
  - PYREXIA [None]
  - RHABDOMYOLYSIS [None]
